FAERS Safety Report 4728181-0 (Version None)
Quarter: 2005Q3

REPORT INFORMATION
  Report Type: 
  Country: None (occurrence: None)
  Receive Date: 20050727
  Receipt Date: 20050718
  Transmission Date: 20060218
  Serious: No
  Sender: FDA-Public Use
  Company Number: 2005-130479-NL

PATIENT
  Age: 79 Year
  Sex: Female

DRUGS (6)
  1. MIRTAZAPINE [Suspect]
     Indication: BIPOLAR I DISORDER
     Dosage: 30 MG
     Route: 048
     Dates: start: 20050603, end: 20050627
  2. MIRTAZAPINE [Suspect]
     Indication: BIPOLAR I DISORDER
     Dosage: 30 MG
     Route: 048
  3. LITHIUM CARBONATE [Concomitant]
     Indication: BIPOLAR DISORDER
  4. TEMAZEPAM [Concomitant]
     Indication: INSOMNIA
  5. SENNA [Concomitant]
     Indication: CONSTIPATION
  6. LACTULOSE [Concomitant]
     Indication: CONSTIPATION

REACTIONS (7)
  - ANTICHOLINERGIC SYNDROME [None]
  - CONDITION AGGRAVATED [None]
  - CONSTIPATION [None]
  - DEPRESSION [None]
  - DRY MOUTH [None]
  - URINARY HESITATION [None]
  - URINARY RETENTION [None]
